FAERS Safety Report 4938261-2 (Version None)
Quarter: 2006Q1

REPORT INFORMATION
  Report Type: 
  Country: None (occurrence: None)
  Receive Date: 20060309
  Receipt Date: 20060227
  Transmission Date: 20060701
  Serious: Yes (Other)
  Sender: FDA-Public Use
  Company Number: US-ROCHE-438525

PATIENT
  Age: 46 Year
  Sex: Female
  Weight: 82.6 kg

DRUGS (18)
  1. PEGASYS [Suspect]
     Indication: HEPATITIS C
     Route: 058
     Dates: start: 20060106
  2. PEGASYS [Suspect]
     Route: 058
  3. PEGASYS [Suspect]
     Route: 058
  4. COPEGUS [Suspect]
     Indication: HEPATITIS C
     Dosage: 400 MG IN THE MORNING AND 200 MG AT NIGHT.
     Route: 048
     Dates: start: 20060106, end: 20060301
  5. COPEGUS [Suspect]
     Dosage: DOSE INCREASED.
     Route: 048
     Dates: start: 20060302
  6. PAXIL [Concomitant]
  7. LASIX [Concomitant]
  8. CELLCEPT [Concomitant]
  9. HYDROCHLOROTHIAZIDE [Concomitant]
  10. PROCARDIA [Concomitant]
  11. PREDNISONE [Concomitant]
  12. ALTACE [Concomitant]
  13. PROGRAF [Concomitant]
  14. TOPROL-XL [Concomitant]
  15. DIOVAN [Concomitant]
  16. ASPIRIN [Concomitant]
     Dosage: REPORTED AS BABY ASPIRIN.
  17. NEXIUM [Concomitant]
  18. PROCRIT [Concomitant]
     Indication: PROPHYLAXIS
     Dates: start: 20060106

REACTIONS (9)
  - ABASIA [None]
  - ASTHENIA [None]
  - BLOOD CREATININE INCREASED [None]
  - DEHYDRATION [None]
  - DEPRESSION [None]
  - INSOMNIA [None]
  - IRRITABILITY [None]
  - NAUSEA [None]
  - RENAL DISORDER [None]
